FAERS Safety Report 6764772-3 (Version None)
Quarter: 2010Q2

REPORT INFORMATION
  Report Type: 
  Country: None (occurrence: None)
  Receive Date: 20100610
  Receipt Date: 20100531
  Transmission Date: 20101027
  Serious: Yes (Hospitalization)
  Sender: FDA-Public Use
  Company Number: FR-ASTRAZENECA-2010SE25121

PATIENT
  Age: 21966 Day
  Sex: Male

DRUGS (12)
  1. NEXIUM [Suspect]
     Indication: PROPHYLAXIS
     Route: 040
     Dates: start: 20100408, end: 20100408
  2. NEXIUM [Suspect]
     Dosage: 80 MG/12 H
     Route: 042
     Dates: start: 20100408, end: 20100410
  3. SYMBICORT [Concomitant]
  4. TAHOR [Concomitant]
     Route: 048
  5. KARDEGIC [Concomitant]
     Route: 048
  6. SERETIDE [Concomitant]
     Route: 045
  7. VENTOLIN [Concomitant]
  8. SPIRIVA [Concomitant]
  9. AMLOR [Concomitant]
  10. EUPRESSYL [Concomitant]
     Route: 048
  11. TRIATEC [Concomitant]
  12. EPO [Concomitant]

REACTIONS (1)
  - MYOCLONUS [None]
